FAERS Safety Report 19892487 (Version 3)
Quarter: 2022Q2

REPORT INFORMATION
  Report Type: Spontaneous
  Country: US (occurrence: None)
  Receive Date: 20210928
  Receipt Date: 20220505
  Transmission Date: 20220721
  Serious: Yes (Disabling, Other)
  Sender: FDA-Public Use
  Company Number: 2021A734084

PATIENT
  Age: 24178 Day
  Sex: Male
  Weight: 68.9 kg

DRUGS (43)
  1. NEXIUM [Suspect]
     Active Substance: ESOMEPRAZOLE MAGNESIUM
     Indication: Gastrooesophageal reflux disease
     Route: 048
     Dates: start: 2001, end: 2010
  2. NEXIUM [Suspect]
     Active Substance: ESOMEPRAZOLE MAGNESIUM
     Indication: Gastrooesophageal reflux disease
     Route: 048
     Dates: start: 2001, end: 2010
  3. NEXIUM [Suspect]
     Active Substance: ESOMEPRAZOLE MAGNESIUM
     Indication: Gastrooesophageal reflux disease
     Dosage: GENERIC
     Route: 048
     Dates: start: 200111
  4. NEXIUM [Suspect]
     Active Substance: ESOMEPRAZOLE MAGNESIUM
     Indication: Gastrooesophageal reflux disease
     Dosage: GENERIC
     Route: 048
     Dates: start: 200111
  5. NEXIUM 24HR [Suspect]
     Active Substance: ESOMEPRAZOLE MAGNESIUM
     Indication: Gastrooesophageal reflux disease
     Route: 048
     Dates: start: 2015, end: 2016
  6. NEXIUM 24HR [Suspect]
     Active Substance: ESOMEPRAZOLE MAGNESIUM
     Indication: Gastrooesophageal reflux disease
     Route: 048
     Dates: start: 2015, end: 2016
  7. PRILOSEC [Suspect]
     Active Substance: OMEPRAZOLE MAGNESIUM
     Indication: Gastrooesophageal reflux disease
     Route: 048
     Dates: start: 2001, end: 2010
  8. PRILOSEC [Suspect]
     Active Substance: OMEPRAZOLE MAGNESIUM
     Indication: Gastrooesophageal reflux disease
     Route: 048
     Dates: start: 2001, end: 2010
  9. PREVACID [Suspect]
     Active Substance: LANSOPRAZOLE
     Indication: Gastrooesophageal reflux disease
     Route: 065
     Dates: start: 2001, end: 2010
  10. PREVACID [Suspect]
     Active Substance: LANSOPRAZOLE
     Indication: Gastrooesophageal reflux disease
     Route: 065
     Dates: start: 2001, end: 2010
  11. PROTONIX [Suspect]
     Active Substance: PANTOPRAZOLE SODIUM
     Indication: Gastrooesophageal reflux disease
     Route: 065
     Dates: start: 2001, end: 2010
  12. PROTONIX [Suspect]
     Active Substance: PANTOPRAZOLE SODIUM
     Indication: Gastrooesophageal reflux disease
     Route: 065
     Dates: start: 2001, end: 2010
  13. LISINOPRIL [Concomitant]
     Active Substance: LISINOPRIL
     Indication: Hypertension
     Dates: start: 2010
  14. ACYCLOVIR [Concomitant]
     Active Substance: ACYCLOVIR
     Indication: Infection
     Dates: start: 2010
  15. NAPROXEN [Concomitant]
     Active Substance: NAPROXEN
     Indication: Headache
     Dates: start: 20130804
  16. NAPROXEN [Concomitant]
     Active Substance: NAPROXEN
     Indication: Myalgia
     Dates: start: 20130804
  17. AMOXICILLIN [Concomitant]
     Active Substance: AMOXICILLIN
     Indication: Infection
     Dates: start: 2010
  18. AMOXICILLIN [Concomitant]
     Active Substance: AMOXICILLIN
     Indication: Infection
     Dates: start: 20161211
  19. SULFAMETHOXAZOLE\TRIMETHOPRIM [Concomitant]
     Active Substance: SULFAMETHOXAZOLE\TRIMETHOPRIM
     Indication: Infection
     Dosage: 800/160 TABS
     Dates: start: 20111029
  20. MELOXICAM [Concomitant]
     Active Substance: MELOXICAM
     Indication: Arthritis
     Dates: start: 20111029
  21. BENADRYL [Concomitant]
     Active Substance: DIPHENHYDRAMINE HYDROCHLORIDE
     Indication: Hypersensitivity
     Dosage: ON AND OFF
     Dates: start: 2012
  22. ASPIRIN [Concomitant]
     Active Substance: ASPIRIN
     Indication: Cardiac disorder
     Dates: start: 2012
  23. VITAMINS [Concomitant]
     Active Substance: VITAMINS
     Indication: Immune system disorder
     Dates: start: 2012
  24. ACETAMINOPHEN [Concomitant]
     Active Substance: ACETAMINOPHEN
     Indication: Pain
     Dosage: AS NEEDED ON AND OFF
  25. ZANTAC [Concomitant]
     Active Substance: RANITIDINE HYDROCHLORIDE
     Dates: start: 2010
  26. TUMS [Concomitant]
     Active Substance: CALCIUM CARBONATE
     Dates: start: 2012, end: 2016
  27. TAMSULOSIN [Concomitant]
     Active Substance: TAMSULOSIN
     Dates: start: 2012, end: 2016
  28. CITALOPRAM [Concomitant]
     Active Substance: CITALOPRAM HYDROBROMIDE
     Dates: start: 2012, end: 2016
  29. PRAVASTATIN [Concomitant]
     Active Substance: PRAVASTATIN
     Dates: start: 2012, end: 2016
  30. TIZANIDINE [Concomitant]
     Active Substance: TIZANIDINE
     Dates: start: 2012, end: 2016
  31. TRULICITY [Concomitant]
     Active Substance: DULAGLUTIDE
     Dates: start: 2012, end: 2016
  32. ONDANSETRON [Concomitant]
     Active Substance: ONDANSETRON
     Dates: start: 2012, end: 2016
  33. FLUTICASONE [Concomitant]
     Active Substance: FLUTICASONE
     Dates: start: 2012, end: 2016
  34. PREGABALIN [Concomitant]
     Active Substance: PREGABALIN
     Dates: start: 2012, end: 2016
  35. EZETIMIBE [Concomitant]
     Active Substance: EZETIMIBE
     Dates: start: 2012, end: 2016
  36. DULOXETINE [Concomitant]
     Active Substance: DULOXETINE
     Dates: start: 2012, end: 2016
  37. ALPRAZOLAM [Concomitant]
     Active Substance: ALPRAZOLAM
     Dates: start: 2012, end: 2016
  38. BUPROPION [Concomitant]
     Active Substance: BUPROPION
     Dates: start: 2012, end: 2016
  39. ZOLPIDEM TARTRATE [Concomitant]
     Active Substance: ZOLPIDEM TARTRATE
     Dates: start: 2012, end: 2016
  40. NITROGLYCERIN [Concomitant]
     Active Substance: NITROGLYCERIN
     Dates: start: 2012, end: 2016
  41. MONTELUKAST [Concomitant]
     Active Substance: MONTELUKAST SODIUM
     Dates: start: 2012, end: 2016
  42. TRESIBA [Concomitant]
     Active Substance: INSULIN DEGLUDEC
     Dates: start: 2012, end: 2016
  43. FINASTERIDE [Concomitant]
     Active Substance: FINASTERIDE
     Dates: start: 2012, end: 2016

REACTIONS (5)
  - Chronic kidney disease [Not Recovered/Not Resolved]
  - Acute kidney injury [Not Recovered/Not Resolved]
  - Renal failure [Unknown]
  - Nephrogenic anaemia [Unknown]
  - Gastrooesophageal reflux disease [Not Recovered/Not Resolved]

NARRATIVE: CASE EVENT DATE: 20210427
